FAERS Safety Report 7318643-4 (Version None)
Quarter: 2011Q1

REPORT INFORMATION
  Report Type: 
  Country: None (occurrence: None)
  Receive Date: 20110228
  Receipt Date: 20110223
  Transmission Date: 20110831
  Serious: Yes (Other)
  Sender: FDA-Public Use
  Company Number: FR-TYCO HEALTHCARE/MALLINCKRODT-T201100083

PATIENT
  Age: 47 Year
  Sex: Female

DRUGS (1)
  1. OPTIJECT [Suspect]
     Indication: PRODUCT USED FOR UNKNOWN INDICATION
     Dosage: UNK
     Route: 042
     Dates: start: 20110119, end: 20110119

REACTIONS (5)
  - INJECTION SITE EXTRAVASATION [None]
  - BLISTER [None]
  - INJECTION SITE HAEMATOMA [None]
  - INJECTION SITE PAIN [None]
  - OEDEMA [None]
